FAERS Safety Report 9135359 (Version 1)
Quarter: 2013Q1

REPORT INFORMATION
  Report Type: Spontaneous
  Country: US (occurrence: US)
  Receive Date: 20130304
  Receipt Date: 20130304
  Transmission Date: 20140127
  Serious: No
  Sender: FDA-Public Use
  Company Number: US-ENDO PHARMACEUTICALS INC.-ENDC20110167

PATIENT
  Sex: Female

DRUGS (3)
  1. ENDOCET [Suspect]
     Indication: PAIN
     Dosage: 40/1300 MG
     Route: 048
     Dates: start: 201103, end: 201105
  2. ESOMEPRAZOLE [Concomitant]
     Indication: GASTROOESOPHAGEAL REFLUX DISEASE
     Dosage: UNKNOWN
     Route: 048
  3. HYDROCODONE [Concomitant]
     Dosage: UNKNOWN
     Route: 048
     Dates: start: 2006

REACTIONS (2)
  - Intestinal ulcer [Not Recovered/Not Resolved]
  - Abdominal pain [Recovering/Resolving]
